FAERS Safety Report 9834178 (Version 1)
Quarter: 2014Q1

REPORT INFORMATION
  Report Type: Spontaneous
  Country: US (occurrence: US)
  Receive Date: 20140122
  Receipt Date: 20140122
  Transmission Date: 20141002
  Serious: No
  Sender: FDA-Public Use
  Company Number: US-BAUSCH-BL-2013-002203

PATIENT
  Age: 49 Year
  Sex: Female

DRUGS (1)
  1. ALAWAY (KETOTIFEN FUMARATE OPHTHALMIC SOLUTION) [Suspect]
     Indication: EYE ALLERGY
     Dosage: 2 DROPS IN EACH EYE, TWO TIMES PER DAY
     Route: 047
     Dates: start: 201304, end: 201304

REACTIONS (1)
  - Eye irritation [Recovered/Resolved]
